FAERS Safety Report 7735064-0 (Version None)
Quarter: 2011Q3

REPORT INFORMATION
  Report Type: 
  Country: None (occurrence: None)
  Receive Date: 20110907
  Receipt Date: 20110831
  Transmission Date: 20111222
  Serious: Yes (Death, Other)
  Sender: FDA-Public Use
  Company Number: US-BAYER-200940554NA

PATIENT
  Age: 78 Year
  Sex: Male
  Weight: 77.098 kg

DRUGS (12)
  1. TRASYLOL [Suspect]
     Indication: PRODUCT USED FOR UNKNOWN INDICATION
     Dosage: UNK
     Route: 042
     Dates: start: 20060527
  2. INDOCIN [Concomitant]
     Dosage: DAILY DOSE 75 MG
     Route: 048
  3. NAPROXEN (ALEVE) [Concomitant]
     Dosage: UNK UNK, PRN
  4. MEGESTROL ACETATE [Concomitant]
     Dosage: DAILY DOSE 20 MG
     Route: 048
  5. NAPROXEN [Concomitant]
     Dosage: 250 MG, BID
     Route: 048
  6. ASPIRIN [Concomitant]
     Dosage: DAILY DOSE 81 MG
     Route: 048
  7. PLAVIX [Concomitant]
     Dosage: DAILY DOSE 75 MG
     Route: 048
  8. ADVIL LIQUI-GELS [Concomitant]
     Dosage: UNK UNK, PRN
  9. ATENOLOL [Concomitant]
     Dosage: DAILY DOSE 50 MG
     Route: 048
  10. SIMVASTATIN [Concomitant]
     Dosage: DAILY DOSE 80 MG
     Route: 048
  11. IMDUR [Concomitant]
     Dosage: 20 MG, BID
     Route: 048
  12. ZESTRIL [Concomitant]
     Dosage: DAILY DOSE 10 MG
     Route: 048

REACTIONS (13)
  - RENAL IMPAIRMENT [None]
  - FEAR [None]
  - ANHEDONIA [None]
  - MULTI-ORGAN FAILURE [None]
  - RENAL FAILURE [None]
  - STRESS [None]
  - PAIN [None]
  - RENAL INJURY [None]
  - INJURY [None]
  - DEATH [None]
  - EMOTIONAL DISTRESS [None]
  - ANXIETY [None]
  - UNEVALUABLE EVENT [None]
